FAERS Safety Report 9506839 (Version 2)
Quarter: 2013Q4

REPORT INFORMATION
  Report Type: Report from Study
  Country: FR (occurrence: FR)
  Receive Date: 20130909
  Receipt Date: 20131104
  Transmission Date: 20140711
  Serious: Yes (Hospitalization)
  Sender: FDA-Public Use
  Company Number: FR-BIOGENIDEC-2013BI083158

PATIENT
  Age: 40 Year
  Sex: Male

DRUGS (3)
  1. TYSABRI [Suspect]
     Indication: MULTIPLE SCLEROSIS
     Route: 042
     Dates: start: 20080502
  2. FORLAX [Concomitant]
     Indication: CONSTIPATION
     Route: 048
     Dates: start: 20090305
  3. LYSANXIA [Concomitant]
     Indication: ANXIOLYTIC THERAPY
     Route: 048
     Dates: start: 201001

REACTIONS (1)
  - Prostatitis [Recovered/Resolved]
